FAERS Safety Report 7966916-4 (Version None)
Quarter: 2011Q4

REPORT INFORMATION
  Report Type: 
  Country: None (occurrence: None)
  Receive Date: 20111209
  Receipt Date: 20111201
  Transmission Date: 20120403
  Serious: Yes (Hospitalization, Other)
  Sender: FDA-Public Use
  Company Number: SE-PFIZER INC-2011242344

PATIENT
  Age: 49 Year
  Sex: Female

DRUGS (3)
  1. CORDARONE [Suspect]
     Indication: PRODUCT USED FOR UNKNOWN INDICATION
     Dosage: 200 MG, DAILY
     Route: 065
     Dates: start: 20110926
  2. DRONEDARONE HCL [Suspect]
     Dosage: 400 MG, DAILY
     Route: 048
     Dates: start: 20110501, end: 20110923
  3. DRONEDARONE HCL [Suspect]
     Indication: ATRIAL FIBRILLATION
     Dosage: 400 MG, DAILY
     Route: 048
     Dates: start: 20110107, end: 20110301

REACTIONS (3)
  - VENTRICULAR FIBRILLATION [None]
  - CARDIAC ARREST [None]
  - TORSADE DE POINTES [None]
